FAERS Safety Report 8599697-4 (Version None)
Quarter: 2012Q3

REPORT INFORMATION
  Report Type: 
  Country: None (occurrence: None)
  Receive Date: 20120802
  Receipt Date: 20120718
  Transmission Date: 20120928
  Serious: Yes (Hospitalization, Other)
  Sender: FDA-Public Use
  Company Number: MCA-N-12-092/02

PATIENT
  Age: 60 Year
  Sex: Female

DRUGS (2)
  1. QUETIAPINE [Concomitant]
  2. VALPROATE SODIUM [Suspect]
     Indication: MANIA
     Dosage: 500 MG

REACTIONS (1)
  - NEUTROPENIA [None]
